FAERS Safety Report 16326255 (Version 1)
Quarter: 2019Q2

REPORT INFORMATION
  Report Type: Spontaneous
  Country: TR (occurrence: TR)
  Receive Date: 20190517
  Receipt Date: 20190517
  Transmission Date: 20190711
  Serious: Yes (Other)
  Sender: FDA-Public Use
  Company Number: TR-PFIZER INC-2019205756

PATIENT
  Age: 26 Year
  Sex: Female

DRUGS (3)
  1. METHYLPREDNISOLONE ACETATE. [Suspect]
     Active Substance: METHYLPREDNISOLONE ACETATE
     Indication: THROMBOCYTOPENIA
     Dosage: 1 MG/KG, UNK (30TH WEEK OF PREGNANCY)
     Dates: start: 1999
  2. METHYLPREDNISOLONE ACETATE. [Suspect]
     Active Substance: METHYLPREDNISOLONE ACETATE
     Indication: EVANS SYNDROME
  3. METHYLPREDNISOLONE ACETATE. [Suspect]
     Active Substance: METHYLPREDNISOLONE ACETATE
     Indication: HAEMOLYSIS

REACTIONS (4)
  - Product use in unapproved indication [Unknown]
  - Gonococcal infection [Recovering/Resolving]
  - Skin lesion [Recovering/Resolving]
  - Off label use [Unknown]

NARRATIVE: CASE EVENT DATE: 1999
